FAERS Safety Report 9602333 (Version 1)
Quarter: 2013Q4

REPORT INFORMATION
  Report Type: Spontaneous
  Country: US (occurrence: US)
  Receive Date: 20131007
  Receipt Date: 20131007
  Transmission Date: 20140711
  Serious: No
  Sender: FDA-Public Use
  Company Number: US-GLAXOSMITHKLINE-A1033092A

PATIENT
  Sex: 0

DRUGS (3)
  1. BENLYSTA [Suspect]
     Indication: SYSTEMIC LUPUS ERYTHEMATOSUS
     Route: 042
  2. IMURAN [Suspect]
     Indication: SYSTEMIC LUPUS ERYTHEMATOSUS
     Route: 065
  3. CORTICOSTEROID [Concomitant]

REACTIONS (1)
  - White blood cell count decreased [Not Recovered/Not Resolved]
